FAERS Safety Report 23676506 (Version 1)
Quarter: 2024Q1

REPORT INFORMATION
  Report Type: Spontaneous
  Country: CN (occurrence: CN)
  Receive Date: 20240327
  Receipt Date: 20240327
  Transmission Date: 20240410
  Serious: Yes (Life-Threatening, Other)
  Sender: FDA-Public Use
  Company Number: None

PATIENT
  Age: 36 Year
  Sex: Female
  Weight: 48 kg

DRUGS (4)
  1. CYCLOPHOSPHAMIDE [Suspect]
     Active Substance: CYCLOPHOSPHAMIDE
     Indication: Breast cancer female
     Dosage: 850 MG, ST, DILUTED WITH 100 ML OF 0.9 % SODIUM CHLORIDE
     Route: 041
     Dates: start: 20240306, end: 20240306
  2. SODIUM CHLORIDE [Suspect]
     Active Substance: SODIUM CHLORIDE
     Indication: Medication dilution
     Dosage: 100 ML, ST, USED TO DILUTE 850 MG OF CYCLOPHOSPHAMIDE
     Route: 041
     Dates: start: 20240306, end: 20240306
  3. DEXTROSE [Suspect]
     Active Substance: DEXTROSE\DEXTROSE MONOHYDRATE
     Indication: Medication dilution
     Dosage: 100 ML, ST, USED TO DILUTE 70 MG OF PIRARUBICIN HYDROCHLORIDE
     Route: 041
     Dates: start: 20240306, end: 20240306
  4. PIRARUBICIN HYDROCHLORIDE [Suspect]
     Active Substance: PIRARUBICIN HYDROCHLORIDE
     Indication: Breast cancer female
     Dosage: 70 MG, ST, DILUTED WITH 100 ML OF 5 % GLUCOSE
     Route: 041
     Dates: start: 20240306, end: 20240306

REACTIONS (1)
  - Myelosuppression [Recovered/Resolved]

NARRATIVE: CASE EVENT DATE: 20240313
